FAERS Safety Report 4433516-2 (Version None)
Quarter: 2004Q3

REPORT INFORMATION
  Report Type: 
  Country: None (occurrence: None)
  Receive Date: 20040824
  Receipt Date: 20040809
  Transmission Date: 20050211
  Serious: No
  Sender: FDA-Public Use
  Company Number: 04P-062-0269993-00

PATIENT
  Age: 63 Year
  Sex: Female

DRUGS (1)
  1. DEPAKENE [Suspect]
     Indication: STATUS EPILEPTICUS

REACTIONS (1)
  - DELUSIONAL DISORDER, UNSPECIFIED TYPE [None]
